FAERS Safety Report 5204396-2 (Version None)
Quarter: 2007Q1

REPORT INFORMATION
  Report Type: 
  Country: None (occurrence: None)
  Receive Date: 20070110
  Receipt Date: 20060315
  Transmission Date: 20070707
  Serious: No
  Sender: FDA-Public Use
  Company Number: US-BRISTOL-MYERS SQUIBB COMPANY-13316146

PATIENT
  Age: 35 Year
  Sex: Male

DRUGS (4)
  1. ABILIFY [Suspect]
     Route: 048
  2. PAXIL CR [Concomitant]
  3. LEXAPRO [Concomitant]
  4. ACNE LOTION [Concomitant]
     Indication: ACNE
     Route: 061

REACTIONS (1)
  - HEPATIC ENZYME INCREASED [None]
